FAERS Safety Report 6286756-4 (Version None)
Quarter: 2009Q3

REPORT INFORMATION
  Report Type: 
  Country: None (occurrence: None)
  Receive Date: 20090727
  Receipt Date: 20090727
  Transmission Date: 20100115
  Serious: No
  Sender: FDA-Public Use
  Company Number: None

PATIENT
  Age: 50 Year
  Sex: Female
  Weight: 119.8 kg

DRUGS (2)
  1. ZOLPIDEM [Suspect]
     Indication: BIPOLAR DISORDER
     Dosage: 12.5 MG AT BEDTIME PO
     Route: 048
     Dates: start: 20081101, end: 20090727
  2. ZOLPIDEM [Suspect]
     Indication: INSOMNIA
     Dosage: 12.5 MG AT BEDTIME PO
     Route: 048
     Dates: start: 20081101, end: 20090727

REACTIONS (2)
  - AMNESIA [None]
  - SOMNAMBULISM [None]
